FAERS Safety Report 22333475 (Version 1)
Quarter: 2023Q2

REPORT INFORMATION
  Report Type: Spontaneous
  Country: US (occurrence: None)
  Receive Date: 20230516
  Receipt Date: 20230516
  Transmission Date: 20230721
  Serious: Yes (Other)
  Sender: FDA-Public Use
  Company Number: None

PATIENT

DRUGS (1)
  1. AMIODARONE [Suspect]
     Active Substance: AMIODARONE
     Dosage: FREQUENCY : TWICE A DAY;?
     Route: 048
     Dates: start: 20220927, end: 20230210

REACTIONS (10)
  - Asthenia [None]
  - Heart rate decreased [None]
  - Dizziness [None]
  - Lung disorder [None]
  - Cough [None]
  - Productive cough [None]
  - Fatigue [None]
  - Asthenia [None]
  - Vision blurred [None]
  - Visual acuity reduced [None]

NARRATIVE: CASE EVENT DATE: 20230515
